FAERS Safety Report 25333921 (Version 1)
Quarter: 2025Q2

REPORT INFORMATION
  Report Type: Spontaneous
  Country: CN (occurrence: CN)
  Receive Date: 20250520
  Receipt Date: 20250520
  Transmission Date: 20250716
  Serious: Yes (Hospitalization, Other)
  Sender: Haleon PLC
  Company Number: CN-HALEON-2242641

PATIENT
  Age: 58 Year
  Sex: Male

DRUGS (3)
  1. DICLOFENAC [Suspect]
     Active Substance: DICLOFENAC
     Indication: Osteoarthritis
  2. ASPIRIN [Concomitant]
     Active Substance: ASPIRIN
     Indication: Osteoarthritis
  3. ASPIRIN [Concomitant]
     Active Substance: ASPIRIN

REACTIONS (10)
  - Intestinal diaphragm disease [Unknown]
  - Enterocolitis [Unknown]
  - Fatigue [Unknown]
  - Melaena [Unknown]
  - Pain [Unknown]
  - Abdominal pain lower [Unknown]
  - Gastrointestinal toxicity [Unknown]
  - Gastritis erosive [Unknown]
  - Intestinal stenosis [Unknown]
  - Immune-mediated enterocolitis [Unknown]
